FAERS Safety Report 21795118 (Version 2)
Quarter: 2023Q2

REPORT INFORMATION
  Report Type: Spontaneous
  Country: DE (occurrence: DE)
  Receive Date: 20221229
  Receipt Date: 20230404
  Transmission Date: 20230722
  Serious: Yes (Other)
  Sender: FDA-Public Use
  Company Number: DE-TEVA-2022-DE-2839083

PATIENT
  Age: 54 Year
  Sex: Female
  Weight: 66 kg

DRUGS (1)
  1. CIPROFLOXACIN HYDROCHLORIDE [Suspect]
     Active Substance: CIPROFLOXACIN HYDROCHLORIDE
     Indication: Cystitis
     Dosage: 1000 MILLIGRAM DAILY; DRUG DOSAGE: 2X 500 MG, FOR 5 DAYS, DRUG DOSAGE: 1 TABLET IN THE MORNING AND 1
     Route: 065
     Dates: start: 20221008, end: 20221013

REACTIONS (61)
  - Osteochondrosis [Unknown]
  - Spinal cord disorder [Unknown]
  - Paraesthesia [Not Recovered/Not Resolved]
  - Tendon pain [Not Recovered/Not Resolved]
  - Connective tissue disorder [Not Recovered/Not Resolved]
  - Vein disorder [Not Recovered/Not Resolved]
  - Musculoskeletal disorder [Not Recovered/Not Resolved]
  - Abdominal discomfort [Not Recovered/Not Resolved]
  - Asthenia [Not Recovered/Not Resolved]
  - Muscle strain [Unknown]
  - Hypoaesthesia [Not Recovered/Not Resolved]
  - Muscular weakness [Unknown]
  - Arthralgia [Not Recovered/Not Resolved]
  - Pain in extremity [Not Recovered/Not Resolved]
  - Ankle deformity [Unknown]
  - Crepitations [Unknown]
  - Musculoskeletal discomfort [Unknown]
  - Back pain [Not Recovered/Not Resolved]
  - Burning sensation [Not Recovered/Not Resolved]
  - Intervertebral disc protrusion [Unknown]
  - Vasodilatation [Not Recovered/Not Resolved]
  - Varicose vein [Not Recovered/Not Resolved]
  - Collagen disorder [Unknown]
  - Weight decreased [Unknown]
  - Skin wrinkling [Not Recovered/Not Resolved]
  - Mucosal disorder [Unknown]
  - Gingival bleeding [Unknown]
  - Tendon disorder [Unknown]
  - Nausea [Unknown]
  - Decreased appetite [Unknown]
  - Fatigue [Unknown]
  - Listless [Unknown]
  - Anxiety [Unknown]
  - Depression [Unknown]
  - Panic attack [Unknown]
  - Heart rate increased [Unknown]
  - Respiratory rate increased [Unknown]
  - Headache [Unknown]
  - Dizziness [Unknown]
  - Head discomfort [Unknown]
  - Disturbance in attention [Unknown]
  - Rash erythematous [Unknown]
  - Intraocular pressure test [Unknown]
  - Impaired quality of life [Unknown]
  - Weight bearing difficulty [Unknown]
  - Eye pain [Unknown]
  - Ocular discomfort [Unknown]
  - Gait disturbance [Not Recovered/Not Resolved]
  - Skin disorder [Not Recovered/Not Resolved]
  - Trichorrhexis [Not Recovered/Not Resolved]
  - Hair colour changes [Not Recovered/Not Resolved]
  - Lip disorder [Not Recovered/Not Resolved]
  - Dark circles under eyes [Not Recovered/Not Resolved]
  - Stress [Not Recovered/Not Resolved]
  - Mobility decreased [Not Recovered/Not Resolved]
  - Myalgia [Not Recovered/Not Resolved]
  - Lip dry [Not Recovered/Not Resolved]
  - Bile acid malabsorption [Unknown]
  - Gastrointestinal inflammation [Unknown]
  - Granulocytosis [Unknown]
  - Gastrointestinal disorder [Unknown]

NARRATIVE: CASE EVENT DATE: 20220101
